FAERS Safety Report 6930242-2 (Version None)
Quarter: 2010Q3

REPORT INFORMATION
  Report Type: 
  Country: None (occurrence: None)
  Receive Date: 20100817
  Receipt Date: 20100817
  Transmission Date: 20110219
  Serious: No
  Sender: FDA-Public Use
  Company Number: None

PATIENT
  Age: 69 Year
  Sex: Female
  Weight: 61.2356 kg

DRUGS (1)
  1. NITROFURANTOIN TAB [Suspect]
     Indication: CYSTITIS
     Dosage: 1 CAPSULE 2XDAILY
     Dates: start: 20100720

REACTIONS (3)
  - PRURITUS [None]
  - RASH ERYTHEMATOUS [None]
  - SWELLING [None]
